FAERS Safety Report 5802130-6 (Version None)
Quarter: 2008Q3

REPORT INFORMATION
  Report Type: 
  Country: None (occurrence: None)
  Receive Date: 20080707
  Receipt Date: 20080626
  Transmission Date: 20090109
  Serious: Yes (Death, Hospitalization)
  Sender: FDA-Public Use
  Company Number: US-PFIZER INC-2007000687

PATIENT
  Sex: Male
  Weight: 83 kg

DRUGS (12)
  1. SUTENT [Suspect]
     Indication: PANCREATIC CARCINOMA
     Route: 048
     Dates: start: 20061211, end: 20061211
  2. SUTENT [Suspect]
     Route: 048
     Dates: start: 20061220, end: 20061231
  3. PACLITAXEL [Suspect]
     Indication: PANCREATIC CARCINOMA
     Route: 042
     Dates: start: 20061218, end: 20061218
  4. CARBOPLATIN [Suspect]
     Indication: PANCREATIC CARCINOMA
     Route: 042
     Dates: start: 20061218, end: 20061218
  5. COLACE [Concomitant]
     Indication: CONSTIPATION
     Dosage: TEXT:1-2-FREQ:QD
     Route: 048
  6. REQUIP [Concomitant]
     Indication: RESTLESS LEGS SYNDROME
     Route: 048
     Dates: start: 20061121
  7. OXYCONTIN [Concomitant]
     Indication: PAIN
     Route: 048
     Dates: start: 20061211
  8. OXYCODONE HCL [Concomitant]
     Indication: PAIN
     Dosage: TEXT:5-10 MG
     Route: 048
     Dates: start: 20061211
  9. MAGNESIUM CITRATE [Concomitant]
     Indication: CONSTIPATION
     Route: 048
     Dates: start: 20061216
  10. MIRALAX [Concomitant]
     Indication: CONSTIPATION
     Dosage: TEXT:1 TBSP
     Route: 048
     Dates: start: 20061218
  11. SIMETHICONE [Concomitant]
     Indication: HICCUPS
     Route: 048
     Dates: start: 20061211
  12. METOCLOPRAMIDE [Concomitant]
     Indication: HICCUPS
     Route: 048
     Dates: start: 20061220

REACTIONS (2)
  - GASTROINTESTINAL HAEMORRHAGE [None]
  - SYNCOPE [None]
